FAERS Safety Report 6445684-1 (Version None)
Quarter: 2009Q4

REPORT INFORMATION
  Report Type: 
  Country: None (occurrence: None)
  Receive Date: 20091118
  Receipt Date: 20091118
  Transmission Date: 20100525
  Serious: No
  Sender: FDA-Public Use
  Company Number: None

PATIENT
  Age: 59 Year
  Sex: Male
  Weight: 83.0083 kg

DRUGS (1)
  1. LEVAQUIN [Suspect]
     Indication: EYELID INFECTION
     Dosage: PILL DAILY PO
     Route: 048
     Dates: start: 20091113, end: 20091116

REACTIONS (2)
  - ABDOMINAL DISCOMFORT [None]
  - INSOMNIA [None]
